FAERS Safety Report 18606161 (Version 4)
Quarter: 2021Q1

REPORT INFORMATION
  Report Type: Spontaneous
  Country: US (occurrence: US)
  Receive Date: 20201211
  Receipt Date: 20210128
  Transmission Date: 20210419
  Serious: No
  Sender: FDA-Public Use
  Company Number: US-PFIZER INC-2020487667

PATIENT
  Age: 52 Year
  Sex: Female

DRUGS (1)
  1. IBRANCE [Suspect]
     Active Substance: PALBOCICLIB
     Dosage: 125 MG
     Dates: start: 20201206

REACTIONS (8)
  - Oropharyngeal pain [Recovering/Resolving]
  - Constipation [Unknown]
  - Oral pain [Recovering/Resolving]
  - Gingival pain [Recovering/Resolving]
  - Blood pressure increased [Unknown]
  - Pain [Unknown]
  - Fatigue [Recovered/Resolved]
  - Gingival swelling [Recovering/Resolving]

NARRATIVE: CASE EVENT DATE: 202012
